FAERS Safety Report 8431624-2 (Version None)
Quarter: 2012Q2

REPORT INFORMATION
  Report Type: 
  Country: None (occurrence: None)
  Receive Date: 20120613
  Receipt Date: 20110616
  Transmission Date: 20120825
  Serious: No
  Sender: FDA-Public Use
  Company Number: US-GLAXOSMITHKLINE-A0750828A

PATIENT
  Age: 33 Year
  Sex: Male

DRUGS (4)
  1. ZYBAN [Concomitant]
  2. DEPAKOTE [Concomitant]
  3. ZOFRAN [Concomitant]
  4. TREXIMET [Suspect]
     Indication: MIGRAINE
     Dosage: 1TAB AS REQUIRED
     Route: 048
     Dates: start: 20080501

REACTIONS (1)
  - DRUG SCREEN FALSE POSITIVE [None]
